FAERS Safety Report 4816335-4 (Version None)
Quarter: 2005Q4

REPORT INFORMATION
  Report Type: 
  Country: None (occurrence: None)
  Receive Date: 20051031
  Receipt Date: 20050722
  Transmission Date: 20060501
  Serious: Yes (Hospitalization)
  Sender: FDA-Public Use
  Company Number: US-MERCK-0507USA03855

PATIENT
  Age: 48 Year
  Sex: Female
  Weight: 175 kg

DRUGS (24)
  1. VIOXX [Suspect]
     Indication: MENISCUS LESION
     Route: 048
     Dates: start: 20030624, end: 20040301
  2. ASPIRIN [Concomitant]
     Route: 065
     Dates: start: 20000101
  3. ACTOS [Concomitant]
     Route: 065
  4. AMARYL [Concomitant]
     Route: 065
  5. CARTIA (DILTIAZEM HYDROCHLORIDE) [Concomitant]
     Indication: HYPERTENSION
     Route: 065
     Dates: start: 20000101
  6. SPIRONOLACTONE [Concomitant]
     Indication: HIRSUTISM
     Route: 065
  7. SPIRONOLACTONE [Concomitant]
     Indication: HYPERTENSION
     Route: 065
  8. ZOCOR [Concomitant]
     Indication: BLOOD CHOLESTEROL INCREASED
     Route: 065
     Dates: start: 20030101
  9. METFORMIN HYDROCHLORIDE [Concomitant]
     Route: 065
  10. METFORMIN HYDROCHLORIDE [Concomitant]
     Route: 065
  11. METFORMIN HYDROCHLORIDE [Concomitant]
     Route: 065
  12. DIOVAN HCT [Concomitant]
     Indication: HYPERTENSION
     Route: 065
     Dates: start: 20000101
  13. ALPRAZOLAM [Concomitant]
     Route: 065
  14. LEXAPRO [Concomitant]
     Route: 065
  15. AVANDIA [Concomitant]
     Route: 065
  16. GLUCOPHAGE [Concomitant]
     Route: 065
  17. STARLIX [Concomitant]
     Route: 065
  18. EFFEXOR [Concomitant]
     Route: 065
     Dates: end: 20040101
  19. CELEBREX [Concomitant]
     Route: 065
     Dates: start: 20030304, end: 20030501
  20. NAPROXEN [Concomitant]
     Route: 065
  21. NEXIUM [Concomitant]
     Route: 065
  22. ALLEGRA [Concomitant]
     Route: 065
  23. PRAVACHOL [Concomitant]
     Route: 065
  24. ALBUTEROL [Concomitant]
     Route: 065

REACTIONS (24)
  - ADRENAL MASS [None]
  - AMNESIA [None]
  - BURNING SENSATION [None]
  - CORONARY ARTERY DISEASE [None]
  - DIABETES MELLITUS INADEQUATE CONTROL [None]
  - DIABETIC NEPHROPATHY [None]
  - DIARRHOEA [None]
  - DYSPNOEA [None]
  - FATIGUE [None]
  - HAEMORRHAGIC DIATHESIS [None]
  - HEPATIC STEATOSIS [None]
  - HIATUS HERNIA [None]
  - HIRSUTISM [None]
  - HYPERLIPIDAEMIA [None]
  - HYPERTENSION [None]
  - INCREASED TENDENCY TO BRUISE [None]
  - INSOMNIA [None]
  - MALE PATTERN BALDNESS [None]
  - NAUSEA [None]
  - OBESITY [None]
  - OEDEMA PERIPHERAL [None]
  - POLYCYSTIC OVARIES [None]
  - RASH [None]
  - SLEEP APNOEA SYNDROME [None]
